FAERS Safety Report 4865938-X (Version None)
Quarter: 2005Q4

REPORT INFORMATION
  Report Type: 
  Country: None (occurrence: None)
  Receive Date: 20051226
  Receipt Date: 20051220
  Transmission Date: 20060501
  Serious: Yes (Other)
  Sender: FDA-Public Use
  Company Number: PHNU2005DE04222

PATIENT
  Age: 66 Year
  Sex: Male

DRUGS (1)
  1. ZOMETA [Suspect]
     Dosage: 4 MG, ONCE/SINGLE
     Dates: start: 20051117, end: 20051117

REACTIONS (5)
  - ARTHRALGIA [None]
  - ARTHRITIS [None]
  - ASPIRATION JOINT [None]
  - JOINT EFFUSION [None]
  - JOINT SWELLING [None]
